FAERS Safety Report 14809618 (Version 2)
Quarter: 2018Q3

REPORT INFORMATION
  Report Type: Spontaneous
  Country: US (occurrence: US)
  Receive Date: 20180425
  Receipt Date: 20180723
  Transmission Date: 20181010
  Serious: No
  Sender: FDA-Public Use
  Company Number: US-AMGEN-USASP2018021187

PATIENT
  Sex: Female

DRUGS (4)
  1. REPATHA [Suspect]
     Active Substance: EVOLOCUMAB
     Indication: HYPOTHYROIDISM
     Dosage: 140 MG, Q2WK
     Route: 058
  2. XOLAIR [Concomitant]
     Active Substance: OMALIZUMAB
     Dosage: 150 MG, UNK
  3. LUNESTA [Concomitant]
     Active Substance: ESZOPICLONE
     Dosage: 3 MG, UNK
  4. REPATHA [Suspect]
     Active Substance: EVOLOCUMAB
     Indication: BLOOD CHOLESTEROL INCREASED

REACTIONS (2)
  - Drug dose omission [Not Recovered/Not Resolved]
  - Off label use [Not Recovered/Not Resolved]
